FAERS Safety Report 6069040-3 (Version None)
Quarter: 2009Q1

REPORT INFORMATION
  Report Type: 
  Country: None (occurrence: None)
  Receive Date: 20090206
  Receipt Date: 20090127
  Transmission Date: 20090719
  Serious: Yes (Hospitalization, Other)
  Sender: FDA-Public Use
  Company Number: PHHO2007MX10328

PATIENT
  Sex: Male

DRUGS (5)
  1. TRILEPTAL [Suspect]
     Indication: CONVULSION
     Dosage: 600 MG, TID
     Route: 048
     Dates: start: 20070109
  2. TRILEPTAL [Suspect]
     Dosage: 600 MG, QD
     Route: 048
     Dates: end: 20080101
  3. KEPPRA [Concomitant]
     Dosage: UNK
     Dates: start: 20070401
  4. VALPROIC ACID [Concomitant]
  5. LAMOTRIGINE [Concomitant]

REACTIONS (8)
  - BLOOD BILIRUBIN INCREASED [None]
  - CONFUSIONAL STATE [None]
  - CONVULSION [None]
  - DIZZINESS [None]
  - DYSLEXIA [None]
  - MEMORY IMPAIRMENT [None]
  - PHOSPHENES [None]
  - TINNITUS [None]
